FAERS Safety Report 25600343 (Version 2)
Quarter: 2025Q4

REPORT INFORMATION
  Report Type: Spontaneous
  Country: EU (occurrence: EU)
  Receive Date: 20250724
  Receipt Date: 20251017
  Transmission Date: 20260118
  Serious: Yes (Hospitalization, Other)
  Sender: AMGEN
  Company Number: EU-002147023-NVSC2025DE115790

PATIENT
  Sex: Female

DRUGS (1)
  1. AIMOVIG [Suspect]
     Active Substance: ERENUMAB-AOOE
     Indication: Migraine
     Dosage: 70 MG, QMO
     Route: 065

REACTIONS (6)
  - Nausea [Unknown]
  - Peripheral vascular disorder [Unknown]
  - Infusion site thrombosis [Unknown]
  - Dizziness [Unknown]
  - Aura [Unknown]
  - Product dose omission issue [Unknown]

NARRATIVE: CASE EVENT DATE: 20250401
